FAERS Safety Report 5904632-0 (Version None)
Quarter: 2008Q3

REPORT INFORMATION
  Report Type: 
  Country: None (occurrence: None)
  Receive Date: 20080930
  Receipt Date: 20080930
  Transmission Date: 20090109
  Serious: Yes (Life-Threatening, Hospitalization)
  Sender: FDA-Public Use
  Company Number: None

PATIENT
  Age: 67 Year
  Sex: Female
  Weight: 104 kg

DRUGS (2)
  1. ACTIVASE [Suspect]
     Indication: PULMONARY EMBOLISM
     Dosage: 100 MG ONCE IV
     Route: 042
     Dates: start: 20080827, end: 20080827
  2. DEXTROSE/HEPARIN [Suspect]
     Dosage: 1800 UNITS OTHER IV
     Route: 042
     Dates: start: 20080827, end: 20080829

REACTIONS (7)
  - AREFLEXIA [None]
  - BRADYCARDIA [None]
  - GENERAL PHYSICAL HEALTH DETERIORATION [None]
  - HAEMORRHAGE INTRACRANIAL [None]
  - HYPOTONIA [None]
  - MENTAL STATUS CHANGES [None]
  - PUPIL FIXED [None]
